FAERS Safety Report 17845012 (Version 1)
Quarter: 2020Q2

REPORT INFORMATION
  Report Type: Spontaneous
  Country: US (occurrence: US)
  Receive Date: 20200529
  Receipt Date: 20200529
  Transmission Date: 20200714
  Serious: Yes (Hospitalization, Other)
  Sender: FDA-Public Use
  Company Number: None

PATIENT
  Age: 44 Year
  Sex: Female
  Weight: 98 kg

DRUGS (13)
  1. OMNIPAQUE [Concomitant]
     Active Substance: IOHEXOL
     Dates: start: 20200521, end: 20200521
  2. FOLIC ACID. [Concomitant]
     Active Substance: FOLIC ACID
     Dates: start: 20200516
  3. CISATRICARIUM [Concomitant]
     Dates: start: 20200523
  4. REMDESIVIR. [Suspect]
     Active Substance: REMDESIVIR
     Indication: CORONAVIRUS INFECTION
     Route: 042
     Dates: start: 20200521, end: 20200524
  5. ATORVASTATIN [Concomitant]
     Active Substance: ATORVASTATIN
     Dates: start: 20200517, end: 20200522
  6. ASCORBIC ACID. [Concomitant]
     Active Substance: ASCORBIC ACID
     Dates: start: 20200516
  7. DOXYCYCLINE. [Concomitant]
     Active Substance: DOXYCYCLINE
     Dates: start: 20200517, end: 20200523
  8. CODEINE-GUIFENESIN [Concomitant]
     Dates: start: 20200521, end: 20200523
  9. CEFTRIAXONE. [Concomitant]
     Active Substance: CEFTRIAXONE
     Dates: start: 20200517, end: 20200523
  10. CHOLECALCIFEROL [Concomitant]
     Active Substance: CHOLECALCIFEROL
     Dates: start: 20200516
  11. COBICISTAT/ ELVITEGRAVIR/EMTRACITABINE [Concomitant]
     Dates: start: 20200517
  12. NOREPINEPHRINE. [Concomitant]
     Active Substance: NOREPINEPHRINE
     Dates: start: 20200523
  13. MULTIVITAMIN [Concomitant]
     Active Substance: VITAMINS
     Dates: start: 20200516

REACTIONS (6)
  - Blood creatinine increased [None]
  - Therapy interrupted [None]
  - Blood alkaline phosphatase increased [None]
  - Aspartate aminotransferase increased [None]
  - Alanine aminotransferase increased [None]
  - Transaminases increased [None]

NARRATIVE: CASE EVENT DATE: 20200524
